FAERS Safety Report 19756662 (Version 1)
Quarter: 2021Q3

REPORT INFORMATION
  Report Type: Spontaneous
  Country: US (occurrence: US)
  Receive Date: 20210827
  Receipt Date: 20210827
  Transmission Date: 20211014
  Serious: Yes (Other)
  Sender: FDA-Public Use
  Company Number: US-ANIPHARMA-2021-US-015943

PATIENT
  Sex: Female

DRUGS (1)
  1. ARIMIDEX [Suspect]
     Active Substance: ANASTROZOLE
     Indication: PRODUCT USED FOR UNKNOWN INDICATION
     Route: 065
     Dates: start: 20181001, end: 20210609

REACTIONS (10)
  - Arthritis [Unknown]
  - Osteoarthritis [Unknown]
  - Insomnia [Unknown]
  - Pain in extremity [Unknown]
  - Wrist fracture [Unknown]
  - Abdominal pain upper [Unknown]
  - Connective tissue disorder [Unknown]
  - Depression [Unknown]
  - Bone density decreased [Unknown]
  - Hot flush [Unknown]

NARRATIVE: CASE EVENT DATE: 201810
